FAERS Safety Report 6970453-3 (Version None)
Quarter: 2010Q3

REPORT INFORMATION
  Report Type: 
  Country: None (occurrence: None)
  Receive Date: 20100908
  Receipt Date: 20100901
  Transmission Date: 20110219
  Serious: Yes (Death, Life-Threatening, Hospitalization)
  Sender: FDA-Public Use
  Company Number: CN-ROCHE-683912

PATIENT
  Sex: Female
  Weight: 68 kg

DRUGS (9)
  1. TOCILIZUMAB [Suspect]
     Indication: RHEUMATOID ARTHRITIS
     Dosage: FORM REPORTED AS INFUSION
     Route: 042
     Dates: start: 20061110
  2. TOCILIZUMAB [Suspect]
     Route: 042
     Dates: start: 20091104, end: 20091104
  3. TOCILIZUMAB [Suspect]
     Route: 042
     Dates: start: 20091202, end: 20091202
  4. TOCILIZUMAB [Suspect]
     Route: 042
     Dates: start: 20091230, end: 20091230
  5. TOCILIZUMAB [Suspect]
     Dosage: 5 FEB 2010: PERMANENTLY DISCONTINUED
     Route: 042
     Dates: start: 20100127, end: 20100127
  6. METHOTREXATE [Concomitant]
     Route: 048
  7. PREDNISONE [Concomitant]
     Route: 048
  8. ASPIRIN [Concomitant]
     Route: 048
     Dates: start: 20040101
  9. INDOMETHACIN [Concomitant]
     Route: 048

REACTIONS (2)
  - DEMYELINATION [None]
  - ENTERITIS [None]
